FAERS Safety Report 7662317-7 (Version None)
Quarter: 2011Q3

REPORT INFORMATION
  Report Type: 
  Country: None (occurrence: None)
  Receive Date: 20110805
  Receipt Date: 20101227
  Transmission Date: 20111222
  Serious: No
  Sender: FDA-Public Use
  Company Number: US-ABBOTT-10P-163-0694475-00

PATIENT
  Sex: Female
  Weight: 90.8 kg

DRUGS (5)
  1. ZETIA [Concomitant]
     Indication: HYPERTENSION
  2. COZAAR [Concomitant]
     Indication: HYPERTENSION
  3. NIASPAN [Suspect]
     Indication: BLOOD CHOLESTEROL INCREASED
     Dates: start: 20101220
  4. SYNTHROID [Concomitant]
     Indication: THYROID DISORDER
  5. METFORMIN HCL [Concomitant]
     Indication: DIABETES MELLITUS

REACTIONS (2)
  - MYALGIA [None]
  - MUSCLE SPASMS [None]
